FAERS Safety Report 4450218-7 (Version None)
Quarter: 2004Q3

REPORT INFORMATION
  Report Type: 
  Country: None (occurrence: None)
  Receive Date: 20040914
  Receipt Date: 20040831
  Transmission Date: 20050211
  Serious: Yes (Other)
  Sender: FDA-Public Use
  Company Number: ZANA001344

PATIENT
  Sex: Male

DRUGS (4)
  1. TIZANIDINE HCL [Suspect]
     Dosage: ORAL
     Route: 048
  2. FLUVOXAMINE MALEATE [Concomitant]
  3. LORAZEPAM [Concomitant]
  4. AMOXAPINE [Concomitant]

REACTIONS (2)
  - BLOOD PRESSURE DECREASED [None]
  - DEHYDRATION [None]
